FAERS Safety Report 6120698-X (Version None)
Quarter: 2009Q1

REPORT INFORMATION
  Report Type: 
  Country: None (occurrence: None)
  Receive Date: 20090317
  Receipt Date: 20090309
  Transmission Date: 20090719
  Serious: Yes (Hospitalization)
  Sender: FDA-Public Use
  Company Number: DE-ASTRAZENECA-2009PK00818

PATIENT
  Age: 53 Year
  Sex: Female

DRUGS (4)
  1. SEROQUEL [Suspect]
     Dosage: 50-300 MG DAILY
     Route: 048
  2. RISPERDAL [Concomitant]
  3. ARICEPT [Concomitant]
  4. ACCURA [Concomitant]

REACTIONS (1)
  - CIRCULATORY COLLAPSE [None]
